FAERS Safety Report 24555005 (Version 1)
Quarter: 2024Q4

REPORT INFORMATION
  Report Type: Spontaneous
  Country: US (occurrence: US)
  Receive Date: 20241028
  Receipt Date: 20241028
  Transmission Date: 20250115
  Serious: No
  Sender: ACCORD
  Company Number: US-Accord-438676

PATIENT

DRUGS (1)
  1. REGADENOSON [Suspect]
     Active Substance: REGADENOSON
     Indication: Product used for unknown indication
     Route: 042
     Dates: start: 20240723

REACTIONS (2)
  - Incorrect dose administered [Unknown]
  - Syringe issue [Unknown]
